FAERS Safety Report 8019059-8 (Version None)
Quarter: 2012Q1

REPORT INFORMATION
  Report Type: 
  Country: None (occurrence: None)
  Receive Date: 20120103
  Receipt Date: 20111219
  Transmission Date: 20120608
  Serious: Yes (Other)
  Sender: FDA-Public Use
  Company Number: ES-CELGENEUS-144-21880-11033614

PATIENT
  Sex: Female

DRUGS (3)
  1. REVLIMID [Suspect]
     Indication: MULTIPLE MYELOMA
     Route: 048
     Dates: start: 20100305
  2. PREDNISONE TAB [Concomitant]
     Indication: MULTIPLE MYELOMA
     Route: 048
     Dates: start: 20100305
  3. CYCLOPHOSPHAMIDE [Concomitant]
     Indication: MULTIPLE MYELOMA
     Route: 048
     Dates: start: 20100305

REACTIONS (1)
  - HYPOACUSIS [None]
